FAERS Safety Report 6885331-8 (Version None)
Quarter: 2010Q3

REPORT INFORMATION
  Report Type: 
  Country: None (occurrence: None)
  Receive Date: 20100729
  Receipt Date: 20100729
  Transmission Date: 20110219
  Serious: Yes (Other)
  Sender: FDA-Public Use
  Company Number: None

PATIENT
  Age: 52 Year
  Sex: Female
  Weight: 68.0396 kg

DRUGS (2)
  1. EVAMIST [Suspect]
     Indication: MENOPAUSE
     Dates: start: 20100602, end: 20100727
  2. EVAMIST [Suspect]
     Indication: OESTROGEN THERAPY
     Dates: start: 20100602, end: 20100727

REACTIONS (1)
  - ACCIDENTAL EXPOSURE [None]
